FAERS Safety Report 10697160 (Version 1)
Quarter: 2015Q1

REPORT INFORMATION
  Report Type: Spontaneous
  Country: US (occurrence: None)
  Receive Date: 20150107
  Receipt Date: 20150107
  Transmission Date: 20150721
  Serious: No
  Sender: FDA-Public Use
  Company Number: None

PATIENT
  Age: 90 Year
  Sex: Female
  Weight: 54.43 kg

DRUGS (1)
  1. XANAX [Suspect]
     Active Substance: ALPRAZOLAM
     Indication: PARKINSON^S DISEASE
     Route: 048
     Dates: start: 20141004, end: 20150105

REACTIONS (2)
  - Urinary retention [None]
  - Urine odour abnormal [None]

NARRATIVE: CASE EVENT DATE: 20141004
